FAERS Safety Report 8402173-2 (Version None)
Quarter: 2012Q2

REPORT INFORMATION
  Report Type: 
  Country: None (occurrence: None)
  Receive Date: 20120525
  Receipt Date: 20120521
  Transmission Date: 20120825
  Serious: Yes (Other)
  Sender: FDA-Public Use
  Company Number: 2012SP025328

PATIENT
  Age: 67 Year
  Sex: Male

DRUGS (9)
  1. CONIEL [Concomitant]
  2. PEG-INTRON [Suspect]
     Indication: PRODUCT USED FOR UNKNOWN INDICATION
     Dosage: 1.5 MCG/KG, QW, SC
     Route: 058
     Dates: start: 20120418, end: 20120418
  3. REBETOL [Suspect]
     Indication: PRODUCT USED FOR UNKNOWN INDICATION
     Dosage: 800 MG, QD, PO
     Route: 048
     Dates: start: 20120418, end: 20120420
  4. LOSARTAN POTASSIUM AND HYDROCHLOROTHIAZIDE [Concomitant]
  5. LASIX [Concomitant]
  6. TELAVIC (ANTIVIRALS NOS) [Suspect]
     Indication: PRODUCT USED FOR UNKNOWN INDICATION
     Dosage: 2250 MG, QD, PO
     Route: 048
     Dates: start: 20120418, end: 20120420
  7. DIGOXIN [Concomitant]
  8. BISOPROLOL FUMARATE [Concomitant]
  9. WARFARIN SODIUM [Concomitant]

REACTIONS (4)
  - BLOOD PRESSURE DECREASED [None]
  - HEART RATE DECREASED [None]
  - GENERAL PHYSICAL CONDITION ABNORMAL [None]
  - RENAL FAILURE ACUTE [None]
